FAERS Safety Report 6012609-2 (Version None)
Quarter: 2008Q4

REPORT INFORMATION
  Report Type: 
  Country: None (occurrence: None)
  Receive Date: 20081217
  Receipt Date: 20081208
  Transmission Date: 20090506
  Serious: Yes (Death)
  Sender: FDA-Public Use
  Company Number: 2008US001717

PATIENT
  Age: 3 Year

DRUGS (4)
  1. PROGRAF [Suspect]
     Indication: RENAL TRANSPLANT
  2. CORTICOSTEROIDS [Concomitant]
  3. MYCOPHENOLATE MOFETIL [Concomitant]
  4. SIMULECT [Concomitant]

REACTIONS (3)
  - FUNGAL SEPSIS [None]
  - PNEUMONIA ADENOVIRAL [None]
  - PSEUDOMONAL SEPSIS [None]
